FAERS Safety Report 24087911 (Version 2)
Quarter: 2024Q3

REPORT INFORMATION
  Report Type: Report from Study
  Country: PT (occurrence: PT)
  Receive Date: 20240715
  Receipt Date: 20240805
  Transmission Date: 20241017
  Serious: Yes (Other)
  Sender: ABBVIE
  Company Number: PT-ABBVIE-5836917

PATIENT
  Age: 88 Year
  Sex: Female

DRUGS (12)
  1. CARBIDOPA\LEVODOPA [Suspect]
     Active Substance: CARBIDOPA\LEVODOPA
     Indication: Parkinson^s disease
     Dosage: 20 MG + 5 MG (VIA PEG)?MORN:4CC;MAINT:2.6CC/H;EXTRA:1CC?RELATED TO PRODUCT COMPLAINT: TRUE
     Route: 050
     Dates: start: 20230208
  2. CARBIDOPA\LEVODOPA [Suspect]
     Active Substance: CARBIDOPA\LEVODOPA
     Dosage: 20 MG + 5 MG?MORN:4CC;MAINT:2.6CC/H;EXTRA:1CC?RELATED TO PRODUCT COMPLAINT: TRUE
     Route: 050
     Dates: start: 20221109, end: 20230208
  3. CARBIDOPA\LEVODOPA [Suspect]
     Active Substance: CARBIDOPA\LEVODOPA
     Dosage: 20 MG + 5 MG (VIA PEG)?MORN:8.5CC;MAINT:4.3CC/H;EXTRA:2CC?RELATED TO PRODUCT COMPLAINT: TRUE
     Route: 050
     Dates: start: 2024
  4. CLOPIDOGREL [Concomitant]
     Active Substance: CLOPIDOGREL BISULFATE
     Indication: Product used for unknown indication
     Dosage: 1 TABLET AT LUNCH BEFORE DUODOPA?FORM STRENGTH: 75 MILLIGRAM
     Route: 048
  5. DONEPEZIL [Concomitant]
     Active Substance: DONEPEZIL\DONEPEZIL HYDROCHLORIDE
     Indication: Product used for unknown indication
     Dosage: 1 TABLET AT BEDTIME BEFORE DUODOPA?FORM STRENGTH: 5 MILLIGRAM
     Route: 048
     Dates: start: 202304
  6. DONEPEZIL [Concomitant]
     Active Substance: DONEPEZIL\DONEPEZIL HYDROCHLORIDE
     Indication: Product used for unknown indication
     Dosage: 1 TABLET AT BREAKFAST?FORM STRENGTH: 5 MILLIGRAM
     Route: 048
  7. DULOXETINE [Concomitant]
     Active Substance: DULOXETINE
     Indication: Product used for unknown indication
     Dosage: 1 TABLET AT BREAKFAST BEFORE DUODOPA?FORM STRENGTH: 30 MILLIGRAM
     Route: 048
  8. GABAPENTIN [Concomitant]
     Active Substance: GABAPENTIN
     Indication: Product used for unknown indication
     Dosage: 1 TABLET AT BEDTIME BEFORE DUODOPA?FORM STRENGTH: 100 MILLIGRAM
     Route: 048
  9. LOSARTAN [Concomitant]
     Active Substance: LOSARTAN
     Indication: Product used for unknown indication
     Dosage: 1 TABLET AT BREAKFAST BEFORE DUODOPA?FORM STRENGTH: 50 MILLIGRAM
     Route: 048
  10. LACIDIPINE [Concomitant]
     Active Substance: LACIDIPINE
     Indication: Product used for unknown indication
     Dosage: 1 TABLET AT DINNER BEFORE DUODOPA?FORM STRENGTH: 4 MILLIGRAM
     Route: 048
  11. CLONAZEPAM [Concomitant]
     Active Substance: CLONAZEPAM
     Indication: Product used for unknown indication
     Dosage: 1 TABLET AT BEDTIME ?FORM STRENGTH: 0.5 MILLIGRAM
     Dates: start: 202304
  12. OMEPRAZOLE [Concomitant]
     Active Substance: OMEPRAZOLE
     Indication: Product used for unknown indication
     Dosage: 1 TABLET AT FASTING BEFORE DUODOPA?FORM STRENGTH: 20 MILLIGRAM
     Route: 048

REACTIONS (2)
  - Craniocerebral injury [Recovered/Resolved]
  - Stoma site haemorrhage [Recovered/Resolved]

NARRATIVE: CASE EVENT DATE: 20240708
